FAERS Safety Report 13289625 (Version 1)
Quarter: 2017Q1

REPORT INFORMATION
  Report Type: Report from Study
  Country: None (occurrence: IT)
  Receive Date: 20170303
  Receipt Date: 20170303
  Transmission Date: 20170428
  Serious: Yes (Other)
  Sender: FDA-Public Use
  Company Number: IT-ABBVIE-17K-083-1895314-00

PATIENT
  Age: 72 Year
  Sex: Male
  Weight: 84 kg

DRUGS (2)
  1. DUODOPA [Suspect]
     Active Substance: CARBIDOPA\LEVODOPA
     Dosage: MD 12,5 +3 ??CR 3,7 ??ED 4,6
     Route: 050
     Dates: start: 20170218
  2. DUODOPA [Suspect]
     Active Substance: CARBIDOPA\LEVODOPA
     Indication: PARKINSON^S DISEASE
     Dosage: MD 12.5 +3,CR 3.7,ED 4.6
     Route: 050
     Dates: start: 20120716, end: 201612

REACTIONS (1)
  - Gastric ulcer [Recovered/Resolved]

NARRATIVE: CASE EVENT DATE: 201612
